FAERS Safety Report 5625667-1 (Version None)
Quarter: 2008Q1

REPORT INFORMATION
  Report Type: 
  Country: None (occurrence: None)
  Receive Date: 20080207
  Receipt Date: 20080207
  Transmission Date: 20080703
  Serious: Yes (Life-Threatening)
  Sender: FDA-Public Use
  Company Number: None

PATIENT
  Age: 43 Year
  Sex: Female
  Weight: 68.0396 kg

DRUGS (1)
  1. REOPRO [Suspect]
     Indication: DIAGNOSTIC PROCEDURE
     Dosage: 18MG IV  1 DOSE
     Route: 042
     Dates: start: 20080118, end: 20080118

REACTIONS (1)
  - PLATELET COUNT DECREASED [None]
